FAERS Safety Report 20061632 (Version 1)
Quarter: 2021Q4

REPORT INFORMATION
  Report Type: Spontaneous
  Country: FR (occurrence: FR)
  Receive Date: 20211112
  Receipt Date: 20211112
  Transmission Date: 20220303
  Serious: Yes (Hospitalization, Disabling, Congenital Anomaly, Other)
  Sender: FDA-Public Use
  Company Number: FR-ABBVIE-21K-056-4158619-00

PATIENT
  Sex: Male

DRUGS (5)
  1. VALPROATE SODIUM [Suspect]
     Active Substance: VALPROATE SODIUM
     Indication: Maternal exposure timing unspecified
     Route: 064
  2. CLOBAZAM [Suspect]
     Active Substance: CLOBAZAM
     Indication: Maternal exposure timing unspecified
     Route: 064
  3. LAMOTRIGINE [Suspect]
     Active Substance: LAMOTRIGINE
     Indication: Maternal exposure timing unspecified
     Route: 064
  4. OXCARBAZEPINE [Suspect]
     Active Substance: OXCARBAZEPINE
     Indication: Maternal exposure timing unspecified
     Route: 064
  5. FOLIC ACID [Concomitant]
     Active Substance: FOLIC ACID
     Indication: Maternal exposure timing unspecified

REACTIONS (41)
  - Ear infection [Unknown]
  - Bronchitis [Unknown]
  - Oropharyngeal pain [Unknown]
  - Bronchiolitis [Unknown]
  - Hallucination, auditory [Unknown]
  - Developmental coordination disorder [Unknown]
  - Congenital musculoskeletal anomaly [Unknown]
  - Fine motor skill dysfunction [Unknown]
  - Language disorder [Unknown]
  - Autism spectrum disorder [Unknown]
  - Congenital knee deformity [Unknown]
  - Intellectual disability [Unknown]
  - Congenital eyelid malformation [Unknown]
  - Congenital scoliosis [Unknown]
  - Visual impairment [Unknown]
  - Dysmorphism [Unknown]
  - Behaviour disorder [Unknown]
  - Learning disorder [Unknown]
  - Speech disorder developmental [Unknown]
  - Hypogonadism [Unknown]
  - Attention deficit hyperactivity disorder [Unknown]
  - Psychomotor hyperactivity [Unknown]
  - Motor developmental delay [Unknown]
  - Logorrhoea [Unknown]
  - Foot deformity [Unknown]
  - Disturbance in attention [Unknown]
  - Dysmorphism [Unknown]
  - Clinodactyly [Unknown]
  - Disorientation [Unknown]
  - Hypertelorism [Unknown]
  - Visual acuity reduced [Unknown]
  - Streptococcal infection [Unknown]
  - Balance disorder [Unknown]
  - Agitation [Unknown]
  - Impulsive behaviour [Unknown]
  - Affect lability [Unknown]
  - Disturbance in social behaviour [Unknown]
  - Joint effusion [Unknown]
  - Educational problem [Unknown]
  - Overweight [Unknown]
  - Foetal exposure during pregnancy [Unknown]
